FAERS Safety Report 6096837-6 (Version None)
Quarter: 2009Q1

REPORT INFORMATION
  Report Type: 
  Country: None (occurrence: None)
  Receive Date: 20090227
  Receipt Date: 20090225
  Transmission Date: 20090719
  Serious: Yes (Other)
  Sender: FDA-Public Use
  Company Number: US-JNJFOC-20090206268

PATIENT
  Age: 42 Year
  Sex: Male

DRUGS (3)
  1. REOPRO [Suspect]
     Dosage: UNSPECIFIED INFUSION
     Route: 042
  2. REOPRO [Suspect]
     Dosage: UNSPECIFIED INFUSION
     Route: 042
  3. REOPRO [Suspect]
     Indication: ACUTE CORONARY SYNDROME
     Route: 042

REACTIONS (1)
  - THROMBOSIS IN DEVICE [None]
